FAERS Safety Report 8958239 (Version 1)
Quarter: 2012Q4

REPORT INFORMATION
  Report Type: 
  Country: US (occurrence: US)
  Receive Date: 20121211
  Receipt Date: 20121211
  Transmission Date: 20130627
  Serious: No
  Sender: FDA-Public Use
  Company Number: US-PFIZER INC-2012306651

PATIENT
  Age: 46 Year
  Sex: Male

DRUGS (1)
  1. INLYTA [Suspect]
     Dosage: 5 mg, 2x/day
     Dates: start: 20121113, end: 20121203

REACTIONS (1)
  - Haemoglobin increased [Unknown]
